FAERS Safety Report 15681839 (Version 1)
Quarter: 2018Q4

REPORT INFORMATION
  Report Type: Spontaneous
  Country: US (occurrence: US)
  Receive Date: 20181121
  Receipt Date: 20181121
  Transmission Date: 20190205
  Serious: No
  Sender: FDA-Public Use
  Company Number: None

PATIENT
  Age: 88 Year
  Sex: Female
  Weight: 65.77 kg

DRUGS (1)
  1. FORTEO [Suspect]
     Active Substance: TERIPARATIDE
     Indication: OSTEOPOROTIC FRACTURE
     Dosage: ?          OTHER STRENGTH:600 MCG/2.4 ML;?
     Route: 058
     Dates: start: 201808

REACTIONS (4)
  - Nausea [None]
  - Fatigue [None]
  - Abdominal discomfort [None]
  - Vomiting [None]
